FAERS Safety Report 8309361-4 (Version None)
Quarter: 2012Q1

REPORT INFORMATION
  Report Type: 
  Country: None (occurrence: None)
  Receive Date: 20120327
  Receipt Date: 20110121
  Transmission Date: 20120608
  Serious: Yes (Other)
  Sender: FDA-Public Use
  Company Number: PHHY2011US05577

PATIENT

DRUGS (1)
  1. GLEEVEC [Suspect]
     Dosage: 800 MG, QD

REACTIONS (2)
  - NEOPLASM RECURRENCE [None]
  - HAEMATOCHEZIA [None]
